FAERS Safety Report 16026083 (Version 1)
Quarter: 2019Q1

REPORT INFORMATION
  Report Type: Spontaneous
  Country: US (occurrence: US)
  Receive Date: 20190302
  Receipt Date: 20190302
  Transmission Date: 20190418
  Serious: No
  Sender: FDA-Public Use
  Company Number: US-TEVA-2019-US-1008983

PATIENT
  Sex: Female

DRUGS (1)
  1. PROAIR RESPICLICK [Suspect]
     Active Substance: ALBUTEROL SULFATE

REACTIONS (2)
  - Device issue [Unknown]
  - Drug ineffective [Unknown]
